FAERS Safety Report 8708517 (Version 2)
Quarter: 2012Q4

REPORT INFORMATION
  Report Type: Report from Study
  Country: NZ (occurrence: NZ)
  Receive Date: 20120806
  Receipt Date: 20120829
  Transmission Date: 20130627
  Serious: Yes (Death)
  Sender: FDA-Public Use
  Company Number: NZ-UCBSA-062892

PATIENT
  Age: 69 Year
  Sex: Male

DRUGS (16)
  1. ROTIGOTINE [Suspect]
     Route: 062
  2. SINEMET [Concomitant]
     Indication: PARKINSON^S DISEASE
     Dosage: DOSE: 200/50 TOTAL DAILY DOSE: 1800/450
     Route: 048
     Dates: end: 20120710
  3. ENTACAPONE [Concomitant]
     Indication: PARKINSON^S DISEASE
     Route: 048
     Dates: end: 20120716
  4. MADOPAR [Concomitant]
     Indication: PARKINSON^S DISEASE
     Route: 048
     Dates: end: 20120716
  5. MADOPAR [Concomitant]
     Indication: PARKINSON^S DISEASE
     Route: 048
     Dates: end: 20120716
  6. SELEGILINE [Concomitant]
     Indication: PARKINSON^S DISEASE
     Route: 048
     Dates: end: 20120716
  7. AMANTADINE [Concomitant]
     Indication: PARKINSON^S DISEASE
     Route: 048
     Dates: end: 20120716
  8. PARACETAMOL [Concomitant]
     Indication: PAIN
     Route: 048
     Dates: end: 20120716
  9. MAGNESIUM [Concomitant]
     Route: 048
     Dates: end: 20120716
  10. ACCUPRIL [Concomitant]
     Indication: HYPOTENSION
     Route: 048
     Dates: end: 20120716
  11. ASPIRIN [Concomitant]
     Route: 048
     Dates: end: 20120716
  12. LAXOL [Concomitant]
     Indication: CONSTIPATION
     Route: 048
     Dates: end: 20120716
  13. ZOPICLONE [Concomitant]
     Indication: SLEEP DISORDER
     Route: 048
     Dates: end: 20120716
  14. TRIMETHOPRIM [Concomitant]
     Route: 048
     Dates: end: 20120716
  15. CLONAZEPAM [Concomitant]
     Route: 048
     Dates: end: 20120716
  16. DOXEPIN [Concomitant]
     Route: 048
     Dates: end: 20120716

REACTIONS (1)
  - Intestinal ischaemia [Fatal]
